FAERS Safety Report 24092764 (Version 2)
Quarter: 2024Q3

REPORT INFORMATION
  Report Type: Spontaneous
  Country: US (occurrence: US)
  Receive Date: 20240715
  Receipt Date: 20240718
  Transmission Date: 20241017
  Serious: No
  Sender: PFIZER
  Company Number: US-PFIZER INC-202400213842

PATIENT
  Age: 47 Year
  Sex: Female

DRUGS (1)
  1. TUKYSA [Suspect]
     Active Substance: TUCATINIB
     Dosage: 300 MG TWICE DAILY
     Route: 048
     Dates: start: 20221031

REACTIONS (3)
  - Neoplasm progression [Unknown]
  - Dyspepsia [Unknown]
  - Nasopharyngitis [Unknown]
